FAERS Safety Report 9484972 (Version 1)
Quarter: 2013Q3

REPORT INFORMATION
  Report Type: Report from Study
  Country: US (occurrence: US)
  Receive Date: 20130828
  Receipt Date: 20130828
  Transmission Date: 20140515
  Serious: No
  Sender: FDA-Public Use
  Company Number: US-ABBOTT-13P-163-1131640-00

PATIENT
  Age: 70 Year
  Sex: Male
  Weight: 99.88 kg

DRUGS (6)
  1. ANDROGEL 1.62% [Suspect]
     Indication: BLOOD TESTOSTERONE DECREASED
     Dosage: 40.5 MILLIGRAMS DAILY
     Route: 061
     Dates: start: 201212, end: 201305
  2. ANDROGEL 1.62% [Suspect]
     Dosage: 81 MILLIGRAMS DAILY
     Route: 061
     Dates: start: 201305
  3. FENOFIBRATE [Concomitant]
     Indication: BLOOD CHOLESTEROL INCREASED
  4. SERTRALINE [Concomitant]
     Indication: PRODUCT USED FOR UNKNOWN INDICATION
  5. LATANOPROST [Concomitant]
     Indication: PRODUCT USED FOR UNKNOWN INDICATION
  6. COMBIGAN [Concomitant]
     Indication: GLAUCOMA
     Route: 047

REACTIONS (4)
  - Loss of employment [Not Recovered/Not Resolved]
  - Drug administered at inappropriate site [Unknown]
  - Onychomycosis [Recovering/Resolving]
  - Blood testosterone decreased [Not Recovered/Not Resolved]
